FAERS Safety Report 9748819 (Version 2)
Quarter: 2013Q4

REPORT INFORMATION
  Report Type: Spontaneous
  Country: US (occurrence: US)
  Receive Date: 20131212
  Receipt Date: 20131212
  Transmission Date: 20140711
  Serious: No
  Sender: FDA-Public Use
  Company Number: US-INCYTE CORPORATION-2013IN000124

PATIENT
  Sex: Female

DRUGS (3)
  1. JAKAFI [Suspect]
     Indication: MYELOFIBROSIS
     Dosage: 15 MG, BID
     Route: 048
     Dates: start: 20121231
  2. JAKAFI [Suspect]
     Dosage: 15 MG, BID
     Route: 048
     Dates: start: 20121221
  3. JAKAFI [Suspect]
     Dosage: 15 MG, BID
     Route: 048
     Dates: start: 20130329

REACTIONS (8)
  - Stomatitis [Unknown]
  - Constipation [Unknown]
  - Increased appetite [Unknown]
  - Psychomotor hyperactivity [Unknown]
  - Oral herpes [Unknown]
  - Muscle strain [Unknown]
  - Weight increased [Unknown]
  - Blood count abnormal [Unknown]
